FAERS Safety Report 5206119-X (Version None)
Quarter: 2007Q1

REPORT INFORMATION
  Report Type: 
  Country: None (occurrence: None)
  Receive Date: 20070108
  Receipt Date: 20061229
  Transmission Date: 20070707
  Serious: Yes (Other)
  Sender: FDA-Public Use
  Company Number: 219056

PATIENT
  Age: 48 Year
  Sex: Male

DRUGS (7)
  1. AVASTIN [Suspect]
     Indication: PANCREATIC CARCINOMA
     Dosage: INTRAVENOUS; SEE IMAGE
     Route: 042
     Dates: start: 20050810, end: 20050901
  2. AVASTIN [Suspect]
     Indication: PANCREATIC CARCINOMA
     Dosage: INTRAVENOUS; SEE IMAGE
     Route: 042
     Dates: start: 20050901, end: 20050901
  3. TEGAFUR (TEGAFUR) [Suspect]
     Indication: PANCREATIC CARCINOMA
     Dosage: 45 MG, BID
     Dates: start: 20050810, end: 20050914
  4. OXALIPLATIN [Suspect]
     Indication: PANCREATIC CARCINOMA
     Dosage: SEE IMAGE
     Dates: start: 20050810, end: 20050901
  5. PANCRELIPASE (PANCRELIPASE) [Concomitant]
  6. ZOFRAN [Concomitant]
  7. OXYCODONE HCL [Concomitant]

REACTIONS (12)
  - ABDOMINAL ABSCESS [None]
  - CELLULITIS [None]
  - CHILLS [None]
  - CYST [None]
  - FISTULA [None]
  - HAEMATOCRIT DECREASED [None]
  - INCISION SITE ABSCESS [None]
  - METASTASIS [None]
  - MUSCULOSKELETAL PAIN [None]
  - MYOSITIS [None]
  - OEDEMA [None]
  - PYREXIA [None]
